FAERS Safety Report 15993405 (Version 1)
Quarter: 2019Q1

REPORT INFORMATION
  Report Type: Report from Study
  Country: DE (occurrence: DE)
  Receive Date: 20190222
  Receipt Date: 20190222
  Transmission Date: 20190418
  Serious: Yes (Death, Hospitalization)
  Sender: FDA-Public Use
  Company Number: PHHY2016DE038924

PATIENT
  Sex: Male
  Weight: 95 kg

DRUGS (5)
  1. VOTRIENT [Suspect]
     Active Substance: PAZOPANIB HYDROCHLORIDE
     Indication: METASTATIC RENAL CELL CARCINOMA
     Dosage: 800 MG, QD
     Route: 048
     Dates: start: 20151214, end: 20160621
  2. OXYCODON [Concomitant]
     Active Substance: OXYCODONE
     Indication: METASTASES TO BONE
     Dosage: 10 MG, BID
     Route: 048
     Dates: start: 20160229
  3. ZOMETA [Concomitant]
     Active Substance: ZOLEDRONIC ACID
     Indication: METASTASES TO BONE
     Dosage: 4 MG, QMO
     Route: 042
     Dates: start: 20160104, end: 20160531
  4. IBUFLAM [Concomitant]
     Active Substance: IBUPROFEN
     Indication: METASTASES TO BONE
     Dosage: 800 MG, BID
     Route: 048
     Dates: start: 20151228
  5. DEXAMETHASONE. [Concomitant]
     Active Substance: DEXAMETHASONE
     Indication: METASTASES TO CENTRAL NERVOUS SYSTEM
     Dosage: 5 MG, QD
     Route: 048
     Dates: start: 20160428

REACTIONS (6)
  - Groin pain [Recovered/Resolved]
  - Metastatic renal cell carcinoma [Fatal]
  - Dyspnoea [Unknown]
  - Malignant neoplasm progression [Fatal]
  - Impaired healing [Unknown]
  - Pain in extremity [Recovered/Resolved]

NARRATIVE: CASE EVENT DATE: 20160229
